FAERS Safety Report 22115633 (Version 1)
Quarter: 2023Q1

REPORT INFORMATION
  Report Type: Spontaneous
  Country: US (occurrence: US)
  Receive Date: 20230320
  Receipt Date: 20230320
  Transmission Date: 20230417
  Serious: No
  Sender: FDA-Public Use
  Company Number: US-FreseniusKabi-FK202302875

PATIENT

DRUGS (1)
  1. HEPARIN SODIUM IN DEXTROSE [Suspect]
     Active Substance: HEPARIN SODIUM
     Indication: Anticoagulant therapy
     Route: 042
     Dates: start: 202303

REACTIONS (1)
  - Therapeutic product effect increased [Unknown]

NARRATIVE: CASE EVENT DATE: 20230301
